FAERS Safety Report 8888075 (Version 1)
Quarter: 2012Q4

REPORT INFORMATION
  Report Type: 
  Country: US (occurrence: None)
  Receive Date: 20121101
  Receipt Date: 20121101
  Transmission Date: 20130627
  Serious: No
  Sender: FDA-Public Use
  Company Number: None

PATIENT
  Sex: Male
  Weight: 97.7 kg

DRUGS (2)
  1. FLUOROURACIL [Suspect]
     Dates: end: 20011220
  2. LEUCOVORIN CALCIUM [Suspect]
     Dates: end: 20011220

REACTIONS (1)
  - Leukaemia [None]
